FAERS Safety Report 17729202 (Version 1)
Quarter: 2020Q2

REPORT INFORMATION
  Report Type: Spontaneous
  Country: US (occurrence: US)
  Receive Date: 20200429
  Receipt Date: 20200429
  Transmission Date: 20200714
  Serious: Yes (Other)
  Sender: FDA-Public Use
  Company Number: None

PATIENT
  Age: 35 Year
  Sex: Male

DRUGS (1)
  1. TRIKAFTA [Suspect]
     Active Substance: ELEXACAFTOR\IVACAFTOR\TEZACAFTOR
     Dosage: ?          OTHER FREQUENCY:2QAM, 1QPM;?
     Route: 048
     Dates: start: 202002

REACTIONS (3)
  - Bruxism [None]
  - Pain [None]
  - Discomfort [None]

NARRATIVE: CASE EVENT DATE: 202002
